FAERS Safety Report 9164591 (Version 2)
Quarter: 2013Q1

REPORT INFORMATION
  Report Type: Spontaneous
  Country: CA (occurrence: None)
  Receive Date: 20130320
  Receipt Date: 20130320
  Transmission Date: 20140127
  Serious: Yes (Hospitalization, Other)
  Sender: FDA-Public Use
  Company Number: CA-010766

PATIENT
  Age: 39 Year
  Sex: Female
  Weight: 64.41 kg

DRUGS (6)
  1. MENOPUR [Suspect]
     Indication: IN VITRO FERTILISATION
     Route: 058
     Dates: start: 201204, end: 201205
  2. CHORIONIC GONADOTROPIN [Suspect]
     Indication: IN VITRO FERTILISATION
     Route: 030
     Dates: start: 201204, end: 201205
  3. ORGALUTRAN [Suspect]
     Indication: IN VITRO FERTILISATION
     Dosage: PREFILLED SYRINGE
     Route: 058
     Dates: start: 201204, end: 201205
  4. OVIDREL [Suspect]
     Indication: IN VITRO FERTILISATION
     Route: 058
     Dates: start: 201204, end: 201205
  5. PUREGON [Suspect]
     Indication: IN VITRO FERTILISATION
     Dates: start: 201204, end: 201205
  6. LOSEC [Concomitant]

REACTIONS (2)
  - Hyperthyroidism [None]
  - Thyroiditis [None]
